FAERS Safety Report 6284905-5 (Version None)
Quarter: 2009Q3

REPORT INFORMATION
  Report Type: 
  Country: None (occurrence: None)
  Receive Date: 20090723
  Receipt Date: 20090710
  Transmission Date: 20100115
  Serious: Yes (Hospitalization)
  Sender: FDA-Public Use
  Company Number: DSM-2009-00967

PATIENT
  Age: 82 Year
  Sex: Female

DRUGS (2)
  1. OLPRESZIDE (HYDROCHLOROTHIAZIDE, OLMESARTAN MEDOXOMIL) (TABLET) (HYDRO [Suspect]
     Indication: HYPERTENSION
     Dosage: 20 MG/25MG (1 IN 1 D),ORAL
     Route: 048
     Dates: start: 20070301, end: 20090424
  2. CANDURA CR (DOXAZOSIN) (DOXAZOSIN) [Concomitant]

REACTIONS (4)
  - DIZZINESS [None]
  - HYPERGLYCAEMIA [None]
  - POLYDIPSIA [None]
  - SOMNOLENCE [None]
